FAERS Safety Report 6816451-1 (Version None)
Quarter: 2010Q2

REPORT INFORMATION
  Report Type: 
  Country: None (occurrence: None)
  Receive Date: 20100630
  Receipt Date: 20100618
  Transmission Date: 20101027
  Serious: Yes (Other)
  Sender: FDA-Public Use
  Company Number: 2010US002300

PATIENT
  Age: 66 Year
  Sex: Female

DRUGS (5)
  1. VESICARE [Suspect]
     Indication: POLLAKIURIA
     Dosage: 10 MG, UID/QD, ORAL
     Route: 048
     Dates: start: 20091201
  2. ZOLEDRONIC ACID [Concomitant]
  3. LEVOTHYROXINE SODIUM [Concomitant]
  4. EXFORGE [Concomitant]
  5. ACETAMINOPHEN [Concomitant]

REACTIONS (4)
  - ABDOMINAL PAIN UPPER [None]
  - BLADDER CYST [None]
  - DRUG INEFFECTIVE [None]
  - HYSTERECTOMY [None]
